FAERS Safety Report 5160964-8 (Version None)
Quarter: 2006Q4

REPORT INFORMATION
  Report Type: 
  Country: None (occurrence: None)
  Receive Date: 20061130
  Receipt Date: 20060417
  Transmission Date: 20070319
  Serious: No
  Sender: FDA-Public Use
  Company Number: US-BRISTOL-MYERS SQUIBB COMPANY-13348800

PATIENT
  Age: 45 Year
  Sex: Female

DRUGS (1)
  1. AVALIDE [Suspect]

REACTIONS (1)
  - MALAISE [None]
